FAERS Safety Report 6106452-3 (Version None)
Quarter: 2009Q1

REPORT INFORMATION
  Report Type: 
  Country: None (occurrence: None)
  Receive Date: 20090306
  Receipt Date: 20090225
  Transmission Date: 20090719
  Serious: Yes (Other)
  Sender: FDA-Public Use
  Company Number: US-SANOFI-SYNTHELABO-A03200900521

PATIENT
  Sex: Female
  Weight: 76.2 kg

DRUGS (7)
  1. ELOXATIN [Suspect]
     Indication: COLON CANCER STAGE III
     Route: 042
     Dates: start: 20090202, end: 20090202
  2. FLUOROURACIL [Concomitant]
     Indication: COLON CANCER STAGE III
     Dosage: UNK
     Route: 065
  3. LEUCOVORIN CALCIUM [Concomitant]
     Indication: COLON CANCER STAGE III
     Dosage: UNK
     Route: 065
  4. LORAZEPAM [Concomitant]
     Indication: ANXIETY
     Route: 065
     Dates: start: 20090204, end: 20090206
  5. LORAZEPAM [Concomitant]
     Indication: NAUSEA
     Route: 065
     Dates: start: 20090204, end: 20090206
  6. DECADRON [Concomitant]
     Indication: NAUSEA
     Route: 065
     Dates: start: 20090204, end: 20090206
  7. EMEND [Concomitant]
     Indication: DRUG USE FOR UNKNOWN INDICATION
     Dosage: UNK
     Route: 065
     Dates: start: 20090202, end: 20090204

REACTIONS (4)
  - CHEST PAIN [None]
  - DYSPHAGIA [None]
  - DYSPNOEA [None]
  - PERICARDIAL EFFUSION [None]
